FAERS Safety Report 16378481 (Version 1)
Quarter: 2019Q2

REPORT INFORMATION
  Report Type: Spontaneous
  Country: US (occurrence: US)
  Receive Date: 20190412
  Receipt Date: 20190412
  Transmission Date: 20190711
  Serious: Yes (Hospitalization)
  Sender: FDA-Public Use
  Company Number: None

PATIENT
  Age: 61 Year
  Sex: Female

DRUGS (12)
  1. NORVASC [Concomitant]
     Active Substance: AMLODIPINE BESYLATE
     Dates: start: 20181121
  2. REGLAN [Concomitant]
     Active Substance: METOCLOPRAMIDE HYDROCHLORIDE
     Dates: start: 20181121
  3. MOBIC [Concomitant]
     Active Substance: MELOXICAM
     Dates: start: 20181121
  4. TYLENOL [Concomitant]
     Active Substance: ACETAMINOPHEN
     Dates: start: 20181121
  5. ASACOL [Concomitant]
     Active Substance: MESALAMINE
     Dates: start: 20181121
  6. SANDOSTATIN [Concomitant]
     Active Substance: OCTREOTIDE ACETATE
     Dates: start: 20181121
  7. ZOFRAN [Concomitant]
     Active Substance: ONDANSETRON HYDROCHLORIDE
     Dates: start: 20181121
  8. COLACE [Concomitant]
     Active Substance: DOCUSATE SODIUM
     Dates: start: 20181121
  9. AFINITOR [Suspect]
     Active Substance: EVEROLIMUS
     Indication: NEUROENDOCRINE TUMOUR
     Route: 048
     Dates: start: 20181204
  10. BENTYL [Concomitant]
     Active Substance: DICYCLOMINE HYDROCHLORIDE
     Dates: start: 20181121
  11. PRILOSEC [Concomitant]
     Active Substance: OMEPRAZOLE MAGNESIUM
     Dates: start: 20181121
  12. IMURAN [Concomitant]
     Active Substance: AZATHIOPRINE
     Dates: start: 20181121

REACTIONS (2)
  - Stomatitis [None]
  - Blood glucose increased [None]
